FAERS Safety Report 7206680 (Version 3)
Quarter: 2013Q3

REPORT INFORMATION
  Report Type: Report from Study
  Country: NL (occurrence: NL)
  Receive Date: 20091209
  Receipt Date: 20130827
  Transmission Date: 20140515
  Serious: Yes (Life-Threatening, Hospitalization, Other)
  Sender: FDA-Public Use
  Company Number: NL-ROCHE-650341

PATIENT
  Age: 76 Year
  Sex: 0
  Weight: 73.5 kg

DRUGS (9)
  1. CAPECITABINE [Suspect]
     Indication: GASTRIC CANCER
     Dosage: LAST DOSE PRIOR TO SAE: 03 AUGUST 2009. FREQ. AND ROUTE (PER PROTOCOL)
     Route: 065
     Dates: start: 20090223, end: 20090810
  2. EPIRUBICIN [Suspect]
     Indication: GASTRIC CANCER
     Dosage: ON DAY 1 EVERY 3 WEEKS, DOSAGE PER PROTOCOL, LAST DOSE PRIOR TO SAE: 03 AUGUST 2009
     Route: 042
     Dates: start: 20090223, end: 20090810
  3. CISPLATIN [Suspect]
     Indication: GASTRIC CANCER
     Dosage: ON DAY 1 EVERY THREE WEEKS, DOSAGE PER PROTOCOL, LAST DOSE PRIOR TO SAE: 03 AUGUST 2009
     Route: 042
     Dates: start: 20090223, end: 20090810
  4. OXAZEPAM [Concomitant]
  5. FLUCONAZOLE [Concomitant]
     Route: 065
  6. POTASSIUM CHLORIDE [Concomitant]
     Route: 065
  7. NEXIUM [Concomitant]
     Route: 065
     Dates: start: 20090116, end: 20090810
  8. METOCLOPRAMIDE [Concomitant]
  9. ASCAL [Concomitant]
     Route: 065
     Dates: start: 20090806

REACTIONS (8)
  - Atrial fibrillation [Unknown]
  - Clostridial infection [Recovered/Resolved]
  - Vomiting [Recovered/Resolved with Sequelae]
  - Abdominal pain upper [Not Recovered/Not Resolved]
  - Pneumonia [Recovered/Resolved]
  - Sepsis [Recovered/Resolved]
  - Hypotension [Recovered/Resolved]
  - Neutropenia [Recovered/Resolved]
